FAERS Safety Report 25286836 (Version 3)
Quarter: 2025Q2

REPORT INFORMATION
  Report Type: Spontaneous
  Country: TR (occurrence: TR)
  Receive Date: 20250509
  Receipt Date: 20250530
  Transmission Date: 20250716
  Serious: Yes (Other)
  Sender: ABBVIE
  Company Number: TR-ABBOTT-2025A-1398905

PATIENT
  Sex: Female

DRUGS (4)
  1. PANCRELIPASE [Suspect]
     Active Substance: PANCRELIPASE
     Indication: Abdominal pain
     Route: 048
     Dates: start: 202501
  2. DUPHALAC [Suspect]
     Active Substance: LACTULOSE
     Indication: Abdominal discomfort
     Route: 048
     Dates: start: 202501
  3. FERINJECT [Suspect]
     Active Substance: FERRIC CARBOXYMALTOSE
     Indication: Product used for unknown indication
     Route: 042
  4. PINAVERIUM BROMIDE [Suspect]
     Active Substance: PINAVERIUM BROMIDE
     Indication: Abdominal discomfort
     Route: 048
     Dates: start: 202501

REACTIONS (2)
  - Abortion spontaneous [Unknown]
  - Maternal exposure during pregnancy [Unknown]
